FAERS Safety Report 7610021-3 (Version None)
Quarter: 2011Q3

REPORT INFORMATION
  Report Type: 
  Country: None (occurrence: None)
  Receive Date: 20110714
  Receipt Date: 20110516
  Transmission Date: 20111222
  Serious: No
  Sender: FDA-Public Use
  Company Number: US-BAYER-2011-043264

PATIENT
  Age: 61 Year
  Sex: Female
  Weight: 49 kg

DRUGS (1)
  1. NAPROXEN (ALEVE) [Suspect]
     Indication: BACK PAIN
     Dosage: BOTTLE COUNT 20S
     Route: 048
     Dates: start: 20110514, end: 20110515

REACTIONS (1)
  - BACK PAIN [None]
